FAERS Safety Report 5844546-8 (Version None)
Quarter: 2008Q3

REPORT INFORMATION
  Report Type: 
  Country: None (occurrence: None)
  Receive Date: 20080814
  Receipt Date: 20080811
  Transmission Date: 20090109
  Serious: Yes (Hospitalization)
  Sender: FDA-Public Use
  Company Number: PHHO2005IL05192

PATIENT
  Sex: Male
  Weight: 69 kg

DRUGS (1)
  1. EXELON EXELON+TDP [Suspect]
     Indication: DEMENTIA ALZHEIMER'S TYPE
     Dosage: DOSE LEVEL 1: 5 CM2
     Dates: start: 20041107, end: 20050305

REACTIONS (3)
  - DEHYDRATION [None]
  - DELIRIUM [None]
  - DISEASE PROGRESSION [None]
